FAERS Safety Report 8214277-8 (Version None)
Quarter: 2012Q1

REPORT INFORMATION
  Report Type: 
  Country: None (occurrence: None)
  Receive Date: 20120316
  Receipt Date: 20120306
  Transmission Date: 20120608
  Serious: Yes (Hospitalization)
  Sender: FDA-Public Use
  Company Number: US-BAYER-2011-120733

PATIENT
  Age: 30 Year
  Sex: Female
  Weight: 110 kg

DRUGS (6)
  1. YAZ [Suspect]
     Indication: CONTRACEPTION
     Dosage: UNK
     Route: 048
     Dates: start: 20070920, end: 20090107
  2. MOTRIN [Concomitant]
     Indication: MUSCLE SPASMS
  3. IBUPROFEN [Concomitant]
  4. MOTRIN [Concomitant]
     Indication: PAIN
     Dosage: 800 MG, TID
     Route: 048
     Dates: start: 20090107
  5. FLEXERIL [Concomitant]
     Indication: PAIN
     Dosage: 10 MG, UNK
     Route: 048
     Dates: start: 20091231
  6. FLEXERIL [Concomitant]
     Indication: MUSCLE SPASMS

REACTIONS (8)
  - DEEP VEIN THROMBOSIS [None]
  - ANXIETY [None]
  - EMOTIONAL DISTRESS [None]
  - INJURY [None]
  - GENERAL PHYSICAL HEALTH DETERIORATION [None]
  - PULMONARY EMBOLISM [None]
  - ANHEDONIA [None]
  - PAIN [None]
